FAERS Safety Report 7668883-X (Version None)
Quarter: 2011Q3

REPORT INFORMATION
  Report Type: 
  Country: None (occurrence: None)
  Receive Date: 20110808
  Receipt Date: 20110726
  Transmission Date: 20111222
  Serious: No
  Sender: FDA-Public Use
  Company Number: US-ROXANE LABORATORIES, INC.-2011-RO-00959RO

PATIENT
  Sex: Female
  Weight: 87 kg

DRUGS (9)
  1. CALCIUM CITRATE WITH VITAMIN D AND MAGNESIUM [Concomitant]
     Indication: OSTEOPOROSIS
  2. ANASTROZOLE [Suspect]
     Indication: BREAST CYST
     Dosage: 1 MG
     Route: 048
     Dates: start: 20090101
  3. DORZOLAMIDE HYDROCHLORIDE AND TIMOLOL MALEATE [Concomitant]
     Route: 031
  4. VITAMIN E [Concomitant]
  5. METOPROLOL TARTRATE [Concomitant]
     Indication: HYPERTENSION
     Dosage: 50 MG
     Route: 048
  6. LUMIGAN [Concomitant]
     Route: 031
  7. ANASTROZOLE [Suspect]
     Route: 048
  8. ZOCOR [Concomitant]
     Indication: BLOOD CHOLESTEROL INCREASED
     Dosage: 20 MG
  9. MATURE MULTI 50 PLUS [Concomitant]

REACTIONS (10)
  - ARTHRALGIA [None]
  - FEELING ABNORMAL [None]
  - JOINT STIFFNESS [None]
  - MYALGIA [None]
  - DRY MOUTH [None]
  - HOT FLUSH [None]
  - PRURITUS [None]
  - OEDEMA PERIPHERAL [None]
  - LIP DRY [None]
  - BALANCE DISORDER [None]
